FAERS Safety Report 6071009-X (Version None)
Quarter: 2009Q1

REPORT INFORMATION
  Report Type: 
  Country: None (occurrence: None)
  Receive Date: 20090209
  Receipt Date: 20090204
  Transmission Date: 20090719
  Serious: Yes (Hospitalization)
  Sender: FDA-Public Use
  Company Number: B0554446A

PATIENT
  Age: 8 Year
  Sex: Male
  Weight: 26.5 kg

DRUGS (1)
  1. RELENZA [Suspect]
     Indication: INFLUENZA
     Dosage: 5MG TWICE PER DAY
     Route: 055
     Dates: start: 20090109, end: 20090109

REACTIONS (3)
  - ALTERED STATE OF CONSCIOUSNESS [None]
  - MOVEMENT DISORDER [None]
  - VISION BLURRED [None]
